FAERS Safety Report 19367437 (Version 1)
Quarter: 2021Q2

REPORT INFORMATION
  Report Type: Spontaneous
  Country: US (occurrence: US)
  Receive Date: 20210602
  Receipt Date: 20210602
  Transmission Date: 20210717
  Serious: No
  Sender: FDA-Public Use
  Company Number: US-ROCHE-2814692

PATIENT
  Age: 7 Year
  Sex: Male

DRUGS (3)
  1. EVRYSDI [Suspect]
     Active Substance: RISDIPLAM
     Indication: SPINAL MUSCULAR ATROPHY
     Route: 065
     Dates: start: 20200916
  2. TYLENOL [Concomitant]
     Active Substance: ACETAMINOPHEN
     Dates: start: 202104
  3. CODEINE [Concomitant]
     Active Substance: CODEINE
     Dates: start: 202104

REACTIONS (2)
  - Feeling abnormal [Unknown]
  - Pain [Not Recovered/Not Resolved]

NARRATIVE: CASE EVENT DATE: 202104
